FAERS Safety Report 16200085 (Version 1)
Quarter: 2019Q2

REPORT INFORMATION
  Report Type: Spontaneous
  Country: US (occurrence: US)
  Receive Date: 20190415
  Receipt Date: 20190415
  Transmission Date: 20190711
  Serious: Yes (Other)
  Sender: FDA-Public Use
  Company Number: US-SA-2019SA099462

PATIENT
  Age: 75 Year
  Sex: Male

DRUGS (2)
  1. COUMADIN [Suspect]
     Active Substance: WARFARIN SODIUM
     Dosage: UNK
  2. LOVENOX [Suspect]
     Active Substance: ENOXAPARIN SODIUM
     Dosage: 180 MG, BID

REACTIONS (4)
  - International normalised ratio abnormal [Unknown]
  - Deep vein thrombosis [Unknown]
  - Pulmonary embolism [Unknown]
  - Diarrhoea [Unknown]
